FAERS Safety Report 9693347 (Version 4)
Quarter: 2013Q4

REPORT INFORMATION
  Report Type: Spontaneous
  Country: GB (occurrence: GB)
  Receive Date: 20131118
  Receipt Date: 20131202
  Transmission Date: 20140711
  Serious: Yes (Other)
  Sender: FDA-Public Use
  Company Number: GB-PFIZER INC-2013305952

PATIENT
  Age: 33 Year
  Sex: Female

DRUGS (2)
  1. SERTRALINE HCL [Suspect]
     Dosage: 200 MG, 1X/DAY
     Dates: start: 201211
  2. FLUPENTIXOL DECANOATE [Concomitant]
     Dosage: 150 MG EVERY 2 WEEKS
     Route: 030
     Dates: start: 201305

REACTIONS (2)
  - Coeliac disease [Unknown]
  - Dysphagia [Unknown]
